FAERS Safety Report 8599938 (Version 3)
Quarter: 2014Q3

REPORT INFORMATION
  Report Type: Report from Study
  Country: PL (occurrence: PL)
  Receive Date: 20120605
  Receipt Date: 20140825
  Transmission Date: 20150326
  Serious: Yes (Death, Hospitalization, Other)
  Sender: FDA-Public Use
  Company Number: PL-ROCHE-732611

PATIENT
  Age: 61 Year
  Sex: Female
  Weight: 101 kg

DRUGS (9)
  1. RITUXIMAB [Suspect]
     Active Substance: RITUXIMAB
     Indication: CHRONIC LYMPHOCYTIC LEUKAEMIA
     Dosage: LAST DOSE PRIOR TO SAE: 18/JUL/2011
     Route: 042
  2. CYCLOPHOSPHAMIDE. [Suspect]
     Active Substance: CYCLOPHOSPHAMIDE
     Indication: CHRONIC LYMPHOCYTIC LEUKAEMIA
     Dosage: LAST DOSE PRIOR TO SAE: 10/MAY/2010
     Route: 042
     Dates: start: 20091218
  3. ACYCLOVIR. [Concomitant]
     Active Substance: ACYCLOVIR
     Route: 065
  4. RITUXIMAB [Suspect]
     Active Substance: RITUXIMAB
     Dosage: MAINTENANCE PHASE
     Route: 042
  5. METRONIDAZOLE/SPIRAMYCIN [Concomitant]
     Route: 065
     Dates: start: 20081217
  6. PRESTARIUM NEO [Concomitant]
     Route: 065
     Dates: start: 20091217
  7. KETONAL (POLAND) [Concomitant]
     Route: 065
     Dates: start: 20100507
  8. SULFAMETHOXAZOLE/TRIMETHOPRIM [Concomitant]
     Active Substance: SULFAMETHOXAZOLE\TRIMETHOPRIM
     Route: 065
     Dates: start: 20091217
  9. CLADRIBINE. [Suspect]
     Active Substance: CLADRIBINE
     Indication: CHRONIC LYMPHOCYTIC LEUKAEMIA
     Dosage: LAST DOSE PRIOR TO SAE: 10 MAY 2010
     Route: 042

REACTIONS (4)
  - Squamous cell carcinoma of skin [Recovered/Resolved]
  - Squamous cell carcinoma of the oral cavity [Recovered/Resolved]
  - Squamous cell carcinoma of the oral cavity [Fatal]
  - Skin ulcer [Recovered/Resolved with Sequelae]

NARRATIVE: CASE EVENT DATE: 201009
